FAERS Safety Report 15523688 (Version 2)
Quarter: 2018Q4

REPORT INFORMATION
  Report Type: Spontaneous
  Country: CA (occurrence: CA)
  Receive Date: 20181018
  Receipt Date: 20181018
  Transmission Date: 20190205
  Serious: Yes (Hospitalization)
  Sender: FDA-Public Use
  Company Number: CA-EXELIXIS-CABO-18016522

PATIENT
  Age: 53 Year
  Sex: Female

DRUGS (2)
  1. SOMATULINE AUTOGEL [Concomitant]
     Active Substance: LANREOTIDE ACETATE
     Indication: NEUROENDOCRINE TUMOUR
  2. CABOMETYX [Suspect]
     Active Substance: CABOZANTINIB S-MALATE
     Indication: PRODUCT USED FOR UNKNOWN INDICATION
     Dosage: UNK

REACTIONS (2)
  - Back disorder [Unknown]
  - Post procedural complication [Unknown]

NARRATIVE: CASE EVENT DATE: 201809
